FAERS Safety Report 5216993-9 (Version None)
Quarter: 2007Q1

REPORT INFORMATION
  Report Type: 
  Country: None (occurrence: None)
  Receive Date: 20070119
  Receipt Date: 20070109
  Transmission Date: 20070707
  Serious: Yes (Death)
  Sender: FDA-Public Use
  Company Number: 2007SP000407

PATIENT
  Sex: 0

DRUGS (2)
  1. TEMODAL [Suspect]
     Indication: ANAPLASTIC ASTROCYTOMA
  2. RADIOTHERAPY (THERAPEUTIC RADIOPHARMACEUTICALS) [Suspect]
     Indication: ANAPLASTIC ASTROCYTOMA

REACTIONS (3)
  - DEEP VEIN THROMBOSIS [None]
  - GENERAL PHYSICAL HEALTH DETERIORATION [None]
  - GRAND MAL CONVULSION [None]
